FAERS Safety Report 5592898-9 (Version None)
Quarter: 2008Q1

REPORT INFORMATION
  Report Type: 
  Country: None (occurrence: None)
  Receive Date: 20080114
  Receipt Date: 20080114
  Transmission Date: 20080703
  Serious: Yes (Disabling)
  Sender: FDA-Public Use
  Company Number: None

PATIENT
  Sex: Male
  Weight: 83.9154 kg

DRUGS (1)
  1. TRIDOL -TRAMADOL HYDROCHLORIDE-   50 MG [Suspect]
     Indication: LACERATION
     Dates: start: 19900318, end: 19900319

REACTIONS (4)
  - AGGRESSION [None]
  - LOSS OF CONSCIOUSNESS [None]
  - POST-TRAUMATIC AMNESTIC DISORDER [None]
  - VOMITING [None]
